FAERS Safety Report 6183899-0 (Version None)
Quarter: 2009Q2

REPORT INFORMATION
  Report Type: 
  Country: None (occurrence: None)
  Receive Date: 20090506
  Receipt Date: 20090506
  Transmission Date: 20091009
  Serious: No
  Sender: FDA-Public Use
  Company Number: None

PATIENT
  Age: 63 Year
  Sex: Female
  Weight: 95.709 kg

DRUGS (1)
  1. LEVAQUIN [Suspect]
     Dosage: 500 MG DAILY ORAL
     Route: 048
     Dates: start: 20090330, end: 20090412

REACTIONS (2)
  - MUSCULOSKELETAL PAIN [None]
  - TREATMENT NONCOMPLIANCE [None]
